FAERS Safety Report 7923421 (Version 4)
Quarter: 2012Q4

REPORT INFORMATION
  Report Type: 
  Country: US (occurrence: US)
  Receive Date: 20110429
  Receipt Date: 20121101
  Transmission Date: 20130627
  Serious: No
  Sender: FDA-Public Use
  Company Number: US-ASTRAZENECA-2010SE31501

PATIENT
  Age: 52 Year
  Sex: Female

DRUGS (1)
  1. NEXIUM [Suspect]
     Route: 048

REACTIONS (14)
  - Accident [Unknown]
  - Mental impairment [Unknown]
  - Nervous system disorder [Unknown]
  - Neck injury [Unknown]
  - Joint injury [Unknown]
  - Amnesia [Unknown]
  - Movement disorder [Unknown]
  - General physical health deterioration [Unknown]
  - Pain [Unknown]
  - Mental disorder [Unknown]
  - Accident at work [Unknown]
  - Depression [Unknown]
  - Malaise [Unknown]
  - Drug dose omission [Unknown]
